FAERS Safety Report 7762499-2 (Version None)
Quarter: 2011Q3

REPORT INFORMATION
  Report Type: 
  Country: None (occurrence: None)
  Receive Date: 20110920
  Receipt Date: 20110913
  Transmission Date: 20111222
  Serious: Yes (Other)
  Sender: FDA-Public Use
  Company Number: CA-AMGEN-CANCT2011014399

PATIENT
  Age: 80 Year

DRUGS (2)
  1. DENOSUMAB [Suspect]
     Indication: PROSTATE CANCER
     Dates: start: 20080205, end: 20101207
  2. ELIGARD [Concomitant]
     Dosage: 45 MG, Q6MO
     Route: 058
     Dates: start: 20091008

REACTIONS (6)
  - MOUTH INJURY [None]
  - TOOTH FRACTURE [None]
  - OSTEOMYELITIS [None]
  - DEVICE BREAKAGE [None]
  - FALL [None]
  - OSTEONECROSIS OF JAW [None]
